FAERS Safety Report 18872244 (Version 1)
Quarter: 2021Q1

REPORT INFORMATION
  Report Type: Spontaneous
  Country: US (occurrence: US)
  Receive Date: 20210210
  Receipt Date: 20210210
  Transmission Date: 20210420
  Serious: Yes (Death)
  Sender: FDA-Public Use
  Company Number: None

PATIENT
  Age: 36 Year
  Sex: Female
  Weight: 99 kg

DRUGS (4)
  1. HERCEPTIN [Concomitant]
     Active Substance: TRASTUZUMAB
  2. CAPECITABINE. [Suspect]
     Active Substance: CAPECITABINE
     Indication: BREAST CANCER FEMALE
     Route: 048
     Dates: start: 20200930, end: 20210129
  3. IRON [Concomitant]
     Active Substance: IRON
  4. TUKYSA [Concomitant]
     Active Substance: TUCATINIB

REACTIONS (1)
  - Death [None]

NARRATIVE: CASE EVENT DATE: 20210129
